FAERS Safety Report 5760747-1 (Version None)
Quarter: 2008Q2

REPORT INFORMATION
  Report Type: 
  Country: None (occurrence: None)
  Receive Date: 20080606
  Receipt Date: 20080603
  Transmission Date: 20081010
  Serious: Yes (Life-Threatening, Hospitalization)
  Sender: FDA-Public Use
  Company Number: JP-SP-2008-00572

PATIENT
  Age: 79 Year
  Sex: Male

DRUGS (1)
  1. IMMUCYST [Suspect]
     Indication: BLADDER CANCER
     Route: 043
     Dates: start: 20080122, end: 20080205

REACTIONS (3)
  - INTERSTITIAL LUNG DISEASE [None]
  - PYREXIA [None]
  - RESPIRATORY FAILURE [None]
